FAERS Safety Report 5902048-4 (Version None)
Quarter: 2008Q3

REPORT INFORMATION
  Report Type: 
  Country: None (occurrence: None)
  Receive Date: 20080929
  Receipt Date: 20080909
  Transmission Date: 20090109
  Serious: Yes (Other)
  Sender: FDA-Public Use
  Company Number: NL-PFIZER INC-2008077496

PATIENT
  Sex: Male
  Weight: 95 kg

DRUGS (4)
  1. LYRICA [Suspect]
     Indication: NEURALGIA
     Route: 048
     Dates: start: 20080811, end: 20080828
  2. EFFEXOR [Concomitant]
     Route: 048
  3. LIPITOR [Concomitant]
     Route: 048
  4. ALL OTHER THERAPEUTIC PRODUCTS [Concomitant]

REACTIONS (7)
  - FALL [None]
  - HEPATIC ENZYME INCREASED [None]
  - JOINT INJURY [None]
  - LOSS OF CONSCIOUSNESS [None]
  - NECK PAIN [None]
  - TOOTH DISORDER [None]
  - TOOTH FRACTURE [None]
